FAERS Safety Report 21577803 (Version 1)
Quarter: 2022Q4

REPORT INFORMATION
  Report Type: Spontaneous
  Country: US (occurrence: US)
  Receive Date: 20221110
  Receipt Date: 20221110
  Transmission Date: 20230112
  Serious: No
  Sender: FDA-Public Use
  Company Number: US-PFIZER INC-PV202200097796

PATIENT
  Age: 37 Year
  Sex: Female

DRUGS (5)
  1. FLUCONAZOLE [Interacting]
     Active Substance: FLUCONAZOLE
     Dosage: UNK
  2. JAKAFI [Interacting]
     Active Substance: RUXOLITINIB
     Indication: Acute myeloid leukaemia
     Dosage: 5 MG
     Route: 048
  3. JAKAFI [Interacting]
     Active Substance: RUXOLITINIB
     Dosage: 10 MG, 2X/DAY
     Route: 048
     Dates: start: 20220622
  4. JAKAFI [Interacting]
     Active Substance: RUXOLITINIB
     Dosage: 10 MG, 2X/DAY
     Route: 048
     Dates: start: 20211117
  5. PROGESTERONE [Interacting]
     Active Substance: PROGESTERONE
     Dosage: UNK

REACTIONS (4)
  - Hunger [Unknown]
  - Mood altered [Unknown]
  - Drug interaction [Unknown]
  - Weight increased [Unknown]

NARRATIVE: CASE EVENT DATE: 20220622
